FAERS Safety Report 8821916 (Version 1)
Quarter: 2012Q4

REPORT INFORMATION
  Report Type: 
  Country: TW (occurrence: TW)
  Receive Date: 20121003
  Receipt Date: 20121003
  Transmission Date: 20130627
  Serious: Yes (Hospitalization)
  Sender: FDA-Public Use
  Company Number: TW-PAR PHARMACEUTICAL, INC-2012SCPR004632

PATIENT

DRUGS (1)
  1. METRONIDAZOLE [Suspect]
     Indication: PRODUCT USED FOR UNKNOWN INDICATION
     Dosage: 1500 mg, / day
     Route: 065

REACTIONS (4)
  - Toxic encephalopathy [Recovered/Resolved]
  - Wernicke^s encephalopathy [Recovered/Resolved]
  - Demyelination [Recovered/Resolved]
  - Vertigo [Recovered/Resolved]
